FAERS Safety Report 8746940 (Version 1)
Quarter: 2012Q4

REPORT INFORMATION
  Report Type: 
  Country: US (occurrence: US)
  Receive Date: 20120830
  Receipt Date: 20120830
  Transmission Date: 20130627
  Serious: No
  Sender: FDA-Public Use
  Company Number: PHEH2012US016662

PATIENT
  Age: 57 Year
  Sex: Male
  Weight: 99.77 kg

DRUGS (10)
  1. GILENYA [Suspect]
     Dosage: 0.5 mg, QD
     Route: 048
     Dates: start: 20120820
  2. TRICOR [Concomitant]
     Dosage: 145 mg, QD
  3. TRILIPIX [Concomitant]
     Dosage: 135 mg, QD
  4. RITALIN [Concomitant]
     Dosage: 2 DF, BID
  5. TEGRETOL [Concomitant]
     Dosage: 100 mg, BID
  6. TEGRETOL [Concomitant]
     Dosage: 400 mg, BID
  7. PRAVASTATIN [Concomitant]
     Dosage: 40 mg, QHS
  8. PROVIGIL [Concomitant]
     Dosage: 100 mg, UNK
  9. NUVIGIL [Concomitant]
     Dosage: 250 mg, QD
  10. METHYLIN [Concomitant]
     Dosage: 20 mg, BID

REACTIONS (6)
  - Chest pain [Unknown]
  - Confusional state [Unknown]
  - Fatigue [Unknown]
  - Electrocardiogram abnormal [Unknown]
  - Heart rate decreased [Unknown]
  - Blood pressure increased [Unknown]
